FAERS Safety Report 10053432 (Version 1)
Quarter: 2014Q2

REPORT INFORMATION
  Report Type: Report from Study
  Country: BR (occurrence: BR)
  Receive Date: 20140402
  Receipt Date: 20140402
  Transmission Date: 20141212
  Serious: Yes (Other)
  Sender: FDA-Public Use
  Company Number: PHHY2014BR038383

PATIENT
  Sex: Male
  Weight: 80 kg

DRUGS (3)
  1. TRILEPTAL [Suspect]
     Indication: BIPOLAR DISORDER
     Dosage: 2 DF, DAILY
     Route: 048
  2. ANAFRANIL [Concomitant]
     Indication: BIPOLAR DISORDER
     Dosage: UNK UKN, UNK
  3. RIVOTRIL [Concomitant]
     Indication: INSOMNIA
     Dosage: UNK UKN, UNK

REACTIONS (3)
  - Diabetes mellitus [Unknown]
  - Weight increased [Unknown]
  - Malaise [Unknown]
